APPROVED DRUG PRODUCT: VALSARTAN
Active Ingredient: VALSARTAN
Strength: 80MG
Dosage Form/Route: TABLET;ORAL
Application: A077492 | Product #002 | TE Code: AB
Applicant: OHM LABORATORIES INC
Approved: Jun 26, 2014 | RLD: No | RS: No | Type: RX